FAERS Safety Report 14180785 (Version 2)
Quarter: 2018Q1

REPORT INFORMATION
  Report Type: Report from Study
  Country: US (occurrence: US)
  Receive Date: 20171110
  Receipt Date: 20180109
  Transmission Date: 20180508
  Serious: Yes (Hospitalization)
  Sender: FDA-Public Use
  Company Number: US-ACTELION-A-NJ2017-156922

PATIENT
  Age: 71 Year
  Sex: Female
  Weight: 49.89 kg

DRUGS (3)
  1. OPSUMIT [Suspect]
     Active Substance: MACITENTAN
     Indication: PULMONARY ARTERIAL HYPERTENSION
     Dosage: 10 MG, QD
     Route: 048
  2. CYCLOSPORIN [Interacting]
     Active Substance: CYCLOSPORINE
     Indication: PRODUCT USED FOR UNKNOWN INDICATION
     Route: 065
  3. ADCIRCA [Concomitant]
     Active Substance: TADALAFIL

REACTIONS (9)
  - Urinary tract infection [Unknown]
  - Toxicity to various agents [Unknown]
  - Nasal congestion [Unknown]
  - Back pain [Unknown]
  - Sinusitis [Unknown]
  - Epistaxis [Unknown]
  - Sinus disorder [Unknown]
  - Pulmonary oedema [Unknown]
  - Lacrimation increased [Unknown]
